FAERS Safety Report 9035988 (Version 2)
Quarter: 2013Q2

REPORT INFORMATION
  Report Type: Spontaneous
  Country: CA (occurrence: CA)
  Receive Date: 20130129
  Receipt Date: 20130606
  Transmission Date: 20140414
  Serious: Yes (Death)
  Sender: FDA-Public Use
  Company Number: CA-ABBOTT-13P-028-1041848-00

PATIENT
  Age: 64 Year
  Sex: Male
  Weight: 100 kg

DRUGS (3)
  1. BIAXIN [Suspect]
     Indication: BRONCHITIS
     Dates: start: 2011
  2. BENYLIN DM [Suspect]
     Indication: BRONCHITIS
     Route: 048
     Dates: start: 2011
  3. PROZAC [Suspect]
     Indication: PRODUCT USED FOR UNKNOWN INDICATION

REACTIONS (2)
  - Somnolence [Fatal]
  - Toxicity to various agents [Fatal]
